FAERS Safety Report 5957609-3 (Version None)
Quarter: 2008Q4

REPORT INFORMATION
  Report Type: 
  Country: None (occurrence: None)
  Receive Date: 20081107
  Receipt Date: 20081103
  Transmission Date: 20090506
  Serious: Yes (Death)
  Sender: FDA-Public Use
  Company Number: 2008BI029527

PATIENT
  Age: 34 Year
  Sex: Male

DRUGS (15)
  1. TYSABRI [Suspect]
     Indication: MULTIPLE SCLEROSIS
     Dosage: 300 MG; QM; IV
     Route: 042
     Dates: start: 20081028, end: 20081028
  2. PREDNISONE TAB [Concomitant]
  3. AMLODIPINE [Concomitant]
  4. BACLOFEN [Concomitant]
  5. BETHANECHOL [Concomitant]
  6. DIAZEPAM [Concomitant]
  7. FLUOXETINE [Concomitant]
  8. NEURONTIN [Concomitant]
  9. HYDROCHLOROTHIAZIDE [Concomitant]
  10. COZAAR [Concomitant]
  11. POTASSIUM CHLORIDE [Concomitant]
  12. SIMVASTATIN [Concomitant]
  13. TYLENOL (CAPLET) [Concomitant]
  14. CELECOXIB [Concomitant]
  15. ESOMEPRAZOLE MAGNESIUM [Concomitant]

REACTIONS (4)
  - DISEASE PROGRESSION [None]
  - MULTIPLE SCLEROSIS [None]
  - PULMONARY EMBOLISM [None]
  - SUDDEN DEATH [None]
